FAERS Safety Report 5532713-2 (Version None)
Quarter: 2007Q4

REPORT INFORMATION
  Report Type: 
  Country: None (occurrence: None)
  Receive Date: 20071119
  Receipt Date: 20070816
  Transmission Date: 20080405
  Serious: No
  Sender: FDA-Public Use
  Company Number: TPA2007A01753

PATIENT
  Age: 64 Year
  Sex: Female
  Weight: 44.4525 kg

DRUGS (8)
  1. ROZEREM [Suspect]
     Indication: INSOMNIA
     Dosage: 8 MG, QHS, PER ORAL
     Route: 048
     Dates: start: 20070815
  2. METOPROLOL TARTRATE [Concomitant]
  3. RESTORIL [Concomitant]
  4. SYNTHROID [Concomitant]
  5. RITALIN [Concomitant]
  6. TRAVATAN-Z (TRAVOPROST) (DROPS) [Concomitant]
  7. LYRICA [Concomitant]
  8. EXCEDRIN (MIGRAINE) [Concomitant]

REACTIONS (7)
  - BALANCE DISORDER [None]
  - DIZZINESS [None]
  - DRUG INEFFECTIVE [None]
  - FEELING ABNORMAL [None]
  - INITIAL INSOMNIA [None]
  - MIGRAINE [None]
  - NAUSEA [None]
